FAERS Safety Report 10342392 (Version 1)
Quarter: 2014Q3

REPORT INFORMATION
  Report Type: Spontaneous
  Country: US (occurrence: US)
  Receive Date: 20140725
  Receipt Date: 20140725
  Transmission Date: 20150326
  Serious: No
  Sender: FDA-Public Use
  Company Number: US-GLAXOSMITHKLINE-A1062092A

PATIENT
  Age: 59 Year
  Sex: Male
  Weight: 72.7 kg

DRUGS (6)
  1. LAMICTAL XR [Suspect]
     Active Substance: LAMOTRIGINE
     Indication: CEREBROVASCULAR ACCIDENT
     Dosage: 1MG SINGLE DOSE
     Route: 048
     Dates: start: 20140220, end: 20140220
  2. DEPAKOTE [Suspect]
     Active Substance: DIVALPROEX SODIUM
     Indication: PRODUCT USED FOR UNKNOWN INDICATION
     Dosage: 500MG TWICE PER DAY
     Route: 065
     Dates: start: 20140201
  3. LISINOPRIL. [Concomitant]
     Active Substance: LISINOPRIL
  4. CARVEDILOL. [Concomitant]
     Active Substance: CARVEDILOL
  5. BABY ASPIRIN [Concomitant]
     Active Substance: ASPIRIN
  6. MULTIVITAMIN [Concomitant]
     Active Substance: VITAMINS

REACTIONS (16)
  - Hyperhidrosis [Recovering/Resolving]
  - Asthenia [Recovering/Resolving]
  - Blood pressure increased [Recovering/Resolving]
  - Chest pain [Recovering/Resolving]
  - Cold sweat [Recovering/Resolving]
  - Dyspepsia [Recovering/Resolving]
  - Chest discomfort [Recovering/Resolving]
  - Pollakiuria [Recovering/Resolving]
  - Tremor [Recovering/Resolving]
  - Polydipsia [Recovering/Resolving]
  - Nervousness [Recovering/Resolving]
  - Burning sensation [Recovering/Resolving]
  - Aphonia [Recovering/Resolving]
  - Abdominal distension [Recovering/Resolving]
  - Discomfort [Recovering/Resolving]
  - Dyspnoea [Recovering/Resolving]

NARRATIVE: CASE EVENT DATE: 20140220
